FAERS Safety Report 13585785 (Version 2)
Quarter: 2017Q3

REPORT INFORMATION
  Report Type: Report from Study
  Country: US (occurrence: US)
  Receive Date: 20170526
  Receipt Date: 20170710
  Transmission Date: 20171127
  Serious: Yes (Other)
  Sender: FDA-Public Use
  Company Number: US-PFIZER INC-2017228590

PATIENT
  Age: 5 Month

DRUGS (1)
  1. PROPOFOL. [Suspect]
     Active Substance: PROPOFOL
     Indication: SEDATION
     Dosage: 8 MG/KG/H (FIRST INFUSION 6.0-8.0)
     Route: 042

REACTIONS (1)
  - Airway complication of anaesthesia [Unknown]
